FAERS Safety Report 18796554 (Version 3)
Quarter: 2021Q1

REPORT INFORMATION
  Report Type: Report from Study
  Country: None (occurrence: CO)
  Receive Date: 20210127
  Receipt Date: 20210216
  Transmission Date: 20210419
  Serious: Yes (Hospitalization)
  Sender: FDA-Public Use
  Company Number: CO-ABBVIE-21K-036-3747388-00

PATIENT
  Age: 39 Year
  Sex: Male
  Weight: 56 kg

DRUGS (2)
  1. ZEMPLAR [Suspect]
     Active Substance: PARICALCITOL
     Indication: CHRONIC KIDNEY DISEASE
  2. ZEMPLAR [Suspect]
     Active Substance: PARICALCITOL
     Indication: HYPERPARATHYROIDISM SECONDARY
     Route: 048
     Dates: start: 20200213

REACTIONS (7)
  - Pulmonary pain [Recovering/Resolving]
  - Pleural effusion [Unknown]
  - Cough [Recovering/Resolving]
  - Device related infection [Recovered/Resolved]
  - Suffocation feeling [Recovering/Resolving]
  - Haemoglobin decreased [Recovering/Resolving]
  - Weight increased [Recovering/Resolving]

NARRATIVE: CASE EVENT DATE: 202012
